FAERS Safety Report 8450909-7 (Version None)
Quarter: 2012Q2

REPORT INFORMATION
  Report Type: 
  Country: None (occurrence: None)
  Receive Date: 20120604
  Receipt Date: 20110817
  Transmission Date: 20120825
  Serious: Yes (Life-Threatening, Hospitalization)
  Sender: FDA-Public Use
  Company Number: 2011029567

PATIENT
  Sex: Male
  Weight: 65 kg

DRUGS (38)
  1. ZOCOR [Concomitant]
  2. THERAGRAN M (THERAGRAN-M) [Concomitant]
  3. MESTINON [Concomitant]
  4. ZANTAC [Concomitant]
  5. PRIVIGEN [Suspect]
  6. KAOPECTATE (KAOPECTATE /00140201/) [Concomitant]
  7. PRIVIGEN [Suspect]
  8. ZOSYN [Suspect]
     Dosage: (4.5 MG TID)
  9. COREG [Concomitant]
  10. BENTYL [Concomitant]
  11. FLONASE [Concomitant]
  12. NEUTRA-PHOS (NEUTRA-PHOS) [Concomitant]
  13. PRIVIGEN [Suspect]
  14. ASPIRIN [Concomitant]
  15. FERROUS SULFATE TAB [Concomitant]
  16. PRIVIGEN [Suspect]
  17. LOVENOX [Suspect]
     Dosage: (30 MG QD SUBCUTANEOUS)
     Route: 058
  18. SOLU-MEDROL [Concomitant]
  19. KLOR-CON [Concomitant]
  20. NPH INSULIN [Concomitant]
  21. VITAMIN D [Concomitant]
  22. PROTONIX [Concomitant]
  23. PRIVIGEN [Suspect]
     Indication: MYASTHENIA GRAVIS
     Dosage: SEE IMAGE
     Route: 042
     Dates: start: 20110703, end: 20110707
  24. PRIVIGEN [Suspect]
     Indication: MYASTHENIA GRAVIS
     Dosage: SEE IMAGE
     Route: 042
     Dates: start: 20110707, end: 20110707
  25. PRIVIGEN [Suspect]
     Indication: MYASTHENIA GRAVIS
     Dosage: SEE IMAGE
     Route: 042
     Dates: start: 20110703, end: 20110707
  26. PRIVIGEN [Suspect]
     Indication: MYASTHENIA GRAVIS
     Dosage: SEE IMAGE
     Route: 042
     Dates: start: 20110703, end: 20110707
  27. PRIVIGEN [Suspect]
     Indication: MYASTHENIA GRAVIS
     Dosage: SEE IMAGE
     Route: 042
     Dates: start: 20110703, end: 20110707
  28. PRIVIGEN [Suspect]
     Indication: MYASTHENIA GRAVIS
     Dosage: SEE IMAGE
     Route: 042
     Dates: start: 20110704, end: 20110704
  29. PRIVIGEN [Suspect]
     Indication: MYASTHENIA GRAVIS
     Dosage: SEE IMAGE
     Route: 042
     Dates: start: 20110703, end: 20110707
  30. PRIVIGEN [Suspect]
     Indication: MYASTHENIA GRAVIS
     Dosage: SEE IMAGE
     Route: 042
     Dates: start: 20110703, end: 20110707
  31. PRIVIGEN [Suspect]
     Indication: MYASTHENIA GRAVIS
     Dosage: SEE IMAGE
     Route: 042
     Dates: start: 20110703, end: 20110707
  32. PRIVIGEN [Suspect]
     Indication: MYASTHENIA GRAVIS
     Dosage: SEE IMAGE
     Route: 042
     Dates: start: 20110703, end: 20110703
  33. PRIVIGEN [Suspect]
     Indication: MYASTHENIA GRAVIS
     Dosage: SEE IMAGE
     Route: 042
     Dates: start: 20110705, end: 20110705
  34. PRIVIGEN [Suspect]
     Indication: MYASTHENIA GRAVIS
     Dosage: SEE IMAGE
     Route: 042
     Dates: start: 20110706, end: 20110706
  35. PRIVIGEN [Suspect]
  36. FLOMAX [Concomitant]
  37. NOVOLIN R [Concomitant]
  38. CALCIIUM VITAMIN D (OYSTER SHELL CALCIUM WITH VITAMIN D/01746301/) [Concomitant]

REACTIONS (8)
  - ANTI-PLATELET ANTIBODY POSITIVE [None]
  - AUTOANTIBODY POSITIVE [None]
  - RENAL ATROPHY [None]
  - ABDOMINAL PAIN LOWER [None]
  - THROMBOCYTOPENIA [None]
  - DIARRHOEA [None]
  - HAEMOLYTIC ANAEMIA [None]
  - ANTIBODY TEST POSITIVE [None]
